FAERS Safety Report 26218110 (Version 1)
Quarter: 2025Q4

REPORT INFORMATION
  Report Type: Spontaneous
  Country: BR (occurrence: BR)
  Receive Date: 20251231
  Receipt Date: 20251231
  Transmission Date: 20260119
  Serious: Yes (Other)
  Sender: RANBAXY
  Company Number: BR-SUN PHARMACEUTICAL INDUSTRIES INC-2025R1-543727

PATIENT
  Age: 10 Year

DRUGS (3)
  1. METHOTREXATE [Suspect]
     Active Substance: METHOTREXATE
     Indication: Osteolysis
     Dosage: UNK
     Route: 065
  2. NAPROXEN [Suspect]
     Active Substance: NAPROXEN
     Indication: Osteolysis
     Dosage: UNK
     Route: 065
  3. TRIAMCINOLONE [Suspect]
     Active Substance: TRIAMCINOLONE
     Indication: Osteolysis
     Dosage: UNK
     Route: 014

REACTIONS (1)
  - Disease progression [Unknown]
